FAERS Safety Report 9127145 (Version 2)
Quarter: 2013Q1

REPORT INFORMATION
  Report Type: Spontaneous
  Country: IT (occurrence: IT)
  Receive Date: 20130228
  Receipt Date: 20130329
  Transmission Date: 20140127
  Serious: Yes (Hospitalization, Other)
  Sender: FDA-Public Use
  Company Number: IT-PFIZER INC-2013071361

PATIENT
  Age: 74 Year
  Sex: Female

DRUGS (6)
  1. SUTENT [Suspect]
     Indication: RENAL CANCER METASTATIC
     Dosage: 50 MG, 1X/DAY
     Route: 048
     Dates: start: 20121224, end: 20130208
  2. LANSOPRAZOLE [Concomitant]
     Dosage: 30 MG, UNK
     Route: 048
  3. HYDROCHLOROTHIAZIDE, TELMISARTAN [Concomitant]
     Dosage: 40130 MG, UNK
     Route: 048
  4. MESOGLYCAN SODIUM [Concomitant]
     Dosage: 50 MG, UNK
     Route: 048
  5. DILTIAZEM [Concomitant]
     Dosage: 120 MG, UNK
     Route: 048
  6. DAFLON [Concomitant]
     Dosage: 500 MG, UNK
     Route: 048

REACTIONS (1)
  - Acute myocardial infarction [Recovered/Resolved]
